FAERS Safety Report 23600979 (Version 3)
Quarter: 2024Q1

REPORT INFORMATION
  Report Type: Spontaneous
  Country: IT (occurrence: IT)
  Receive Date: 20240306
  Receipt Date: 20240329
  Transmission Date: 20240410
  Serious: Yes (Hospitalization, Other)
  Sender: FDA-Public Use
  Company Number: IT-PFIZER INC-PV202400030242

PATIENT
  Age: 46 Year
  Sex: Male
  Weight: 62 kg

DRUGS (5)
  1. METHOTREXATE SODIUM [Interacting]
     Active Substance: METHOTREXATE SODIUM
     Indication: Brain neoplasm
     Dosage: 50 MG
     Route: 042
  2. PHENYTOIN [Interacting]
     Active Substance: PHENYTOIN
     Indication: Seizure
     Dosage: 350 MG, 1X/DAY
  3. CARMUSTINE [Interacting]
     Active Substance: CARMUSTINE
     Indication: Brain neoplasm
     Dosage: 200 MG
     Route: 042
  4. VINBLASTINE [Interacting]
     Active Substance: VINBLASTINE
     Indication: Brain neoplasm
     Dosage: 10 MG
     Route: 042
  5. PHENOBARBITAL [Concomitant]
     Active Substance: PHENOBARBITAL
     Indication: Seizure
     Dosage: 100 MG, 1X/DAY

REACTIONS (3)
  - Partial seizures [Unknown]
  - Drug interaction [Unknown]
  - Anticonvulsant drug level decreased [Unknown]
